FAERS Safety Report 15075400 (Version 1)
Quarter: 2018Q2

REPORT INFORMATION
  Report Type: Report from Study
  Country: US (occurrence: US)
  Receive Date: 20180627
  Receipt Date: 20180627
  Transmission Date: 20180711
  Serious: Yes (Hospitalization, Other)
  Sender: FDA-Public Use
  Company Number: US-SAOL THERAPEUTICS-2017SAO01576

PATIENT
  Age: 61 Year

DRUGS (8)
  1. BACLOFEN. [Suspect]
     Active Substance: BACLOFEN
     Dosage: 223.46 ?G, \DAY MAX
     Route: 037
  2. CLONIDINE. [Suspect]
     Active Substance: CLONIDINE
     Dosage: 85.85 ?G, \DAY
     Route: 037
     Dates: start: 20170906
  3. CLONIDINE. [Suspect]
     Active Substance: CLONIDINE
     Dosage: 109.25 ?G, \DAY MAX
     Route: 037
     Dates: start: 20170906
  4. CLONIDINE. [Suspect]
     Active Substance: CLONIDINE
     Dosage: 145.66 ?G, \DAY MAX
     Route: 037
     Dates: end: 20170906
  5. MORPHINE [Suspect]
     Active Substance: MORPHINE
     Dosage: 8.276 MG, \DAY MAX
     Route: 037
  6. MORPHINE [Suspect]
     Active Substance: MORPHINE
     Dosage: 6.503 MG, \DAY
     Route: 037
  7. CLONIDINE. [Suspect]
     Active Substance: CLONIDINE
     Dosage: 114.46 ?G, \DAY
     Route: 037
     Dates: end: 20170906
  8. BACLOFEN. [Suspect]
     Active Substance: BACLOFEN
     Dosage: 175.59 ?G, \DAY
     Route: 037

REACTIONS (3)
  - Implant site pain [Recovered/Resolved]
  - Implant site infection [Recovered/Resolved]
  - Cellulitis [Recovered/Resolved]

NARRATIVE: CASE EVENT DATE: 20170925
